FAERS Safety Report 21407681 (Version 2)
Quarter: 2023Q1

REPORT INFORMATION
  Report Type: Spontaneous
  Country: US (occurrence: US)
  Receive Date: 20221004
  Receipt Date: 20230307
  Transmission Date: 20230418
  Serious: Yes (Other)
  Sender: FDA-Public Use
  Company Number: US-INCYTE CORPORATION-2022IN009483

PATIENT

DRUGS (1)
  1. JAKAFI [Suspect]
     Active Substance: RUXOLITINIB
     Dosage: 10 MILLIGRAM, BID
     Route: 048
     Dates: start: 202005

REACTIONS (3)
  - Squamous cell carcinoma [Unknown]
  - Polycythaemia vera [Unknown]
  - Rash papular [Unknown]

NARRATIVE: CASE EVENT DATE: 20220925
